FAERS Safety Report 13297267 (Version 1)
Quarter: 2017Q1

REPORT INFORMATION
  Report Type: Spontaneous
  Country: US (occurrence: US)
  Receive Date: 20170303
  Receipt Date: 20170303
  Transmission Date: 20170428
  Serious: Yes (Disabling)
  Sender: FDA-Public Use
  Company Number: None

PATIENT
  Age: 47 Year
  Sex: Female
  Weight: 61.65 kg

DRUGS (4)
  1. LINZES SYNTHROID [Concomitant]
  2. COLGATE OPTIC WHITE - SPARKLING MINT [Suspect]
     Active Substance: SODIUM MONOFLUOROPHOSPHATE
     Indication: DENTAL CLEANING
     Route: 048
     Dates: start: 20161226, end: 20170206
  3. ZOLOFT [Concomitant]
     Active Substance: SERTRALINE HYDROCHLORIDE
  4. ONE A DAY VITAMINS [Concomitant]

REACTIONS (4)
  - Ageusia [None]
  - Paraesthesia oral [None]
  - Dysgeusia [None]
  - Noninfective gingivitis [None]

NARRATIVE: CASE EVENT DATE: 20170120
